FAERS Safety Report 7015067-4 (Version None)
Quarter: 2010Q3

REPORT INFORMATION
  Report Type: 
  Country: None (occurrence: None)
  Receive Date: 20100927
  Receipt Date: 20100914
  Transmission Date: 20110219
  Serious: Yes (Other)
  Sender: FDA-Public Use
  Company Number: PHHY2010BR61761

PATIENT
  Sex: Male
  Weight: 55 kg

DRUGS (7)
  1. DIOVAN AMLO [Suspect]
     Indication: HYPERTENSION
     Dosage: 1 TABLET (160/5 MG) DAILY
     Route: 048
  2. DIMETICON [Concomitant]
     Indication: FLATULENCE
     Dosage: 1 TABLET (125 MG) 2 TIMES DAILY
     Route: 048
  3. CAPTOPRIL [Concomitant]
     Indication: HYPERTENSION
     Dosage: 1 TABLET (25 MG) 3 TIMES DAILY
     Route: 048
  4. HYGROTON [Concomitant]
     Indication: HYPERTENSION
     Dosage: (12.5 MG) 1 TABLET
     Route: 048
  5. ATENOLOL [Concomitant]
     Indication: HYPERTENSION
     Dosage: 1 TABLET (25 MG) DAILY
     Dates: start: 20100913
  6. ANADOR [Concomitant]
     Indication: HEADACHE
     Dosage: 1 TABLET
  7. ANTIBIOTICS [Concomitant]

REACTIONS (7)
  - BLOOD TESTOSTERONE DECREASED [None]
  - CONFUSIONAL STATE [None]
  - ERYTHEMA [None]
  - HEADACHE [None]
  - HYPERTENSION [None]
  - PNEUMONIA [None]
  - SOMNOLENCE [None]
